FAERS Safety Report 9868951 (Version 3)
Quarter: 2014Q1

REPORT INFORMATION
  Report Type: Report from Study
  Country: CA (occurrence: CA)
  Receive Date: 20140205
  Receipt Date: 20140311
  Transmission Date: 20141002
  Serious: Yes (Other)
  Sender: FDA-Public Use
  Company Number: CA-ROCHE-1125368

PATIENT
  Age: 50 Year
  Sex: Female
  Weight: 52.21 kg

DRUGS (16)
  1. RITUXAN [Suspect]
     Indication: MICROSCOPIC POLYANGIITIS
     Dosage: PATIENT LAST RECEIVED A DOSE OF RITUXIMAB ON01/OCT/2012
     Route: 042
     Dates: start: 20120910
  2. METHOTREXATE [Concomitant]
  3. BACLOFEN [Concomitant]
  4. BETAHISTINE [Concomitant]
  5. PREDNISONE [Concomitant]
  6. SYMBICORT [Concomitant]
  7. DIPHENHYDRAMINE HCL [Concomitant]
     Dosage: ONCE
     Route: 048
     Dates: start: 20120910
  8. ACETAMINOPHEN [Concomitant]
     Dosage: ONCE
     Route: 048
     Dates: start: 20120910
  9. METHYLPREDNISOLONE [Concomitant]
     Dosage: ONCE
     Route: 042
     Dates: start: 20120910
  10. OMEGA 3 [Concomitant]
  11. OMEGA 9 [Concomitant]
  12. VITAMIN B12 [Concomitant]
  13. FOLIC ACID [Concomitant]
  14. TYLENOL [Concomitant]
     Route: 048
     Dates: start: 20120913
  15. BENADRYL (CANADA) [Concomitant]
     Route: 048
     Dates: start: 20120913
  16. SOLU-MEDROL [Concomitant]
     Route: 042
     Dates: start: 20120913

REACTIONS (5)
  - Presyncope [Recovered/Resolved]
  - Sinus disorder [Unknown]
  - Fatigue [Recovered/Resolved]
  - Somnolence [Unknown]
  - Off label use [Unknown]
